FAERS Safety Report 12632781 (Version 2)
Quarter: 2016Q3

REPORT INFORMATION
  Report Type: Spontaneous
  Country: US (occurrence: US)
  Receive Date: 20160808
  Receipt Date: 20160808
  Transmission Date: 20161109
  Serious: No
  Sender: FDA-Public Use
  Company Number: US-BEH-2015056931

PATIENT
  Sex: Female
  Weight: 53 kg

DRUGS (28)
  1. HIZENTRA [Suspect]
     Active Substance: HUMAN IMMUNOGLOBULIN G
     Route: 058
  2. ADVAIR DISCUS [Concomitant]
     Dosage: 500-50 MCG BLST W/DEV
  3. ZOFRAN [Concomitant]
     Active Substance: ONDANSETRON HYDROCHLORIDE
     Dosage: 2 MG/ML VIAL
  4. INDOCIN [Concomitant]
     Active Substance: INDOMETHACIN\INDOMETHACIN SODIUM
  5. DIAZEPAM. [Concomitant]
     Active Substance: DIAZEPAM
  6. LIDODERM [Concomitant]
     Active Substance: LIDOCAINE
     Dosage: PATCH
  7. LIDOCAINE/PRILOCAINE [Concomitant]
     Active Substance: LIDOCAINE\PRILOCAINE
  8. RESTASIS [Concomitant]
     Active Substance: CYCLOSPORINE
     Dosage: DROPERETTE
  9. BACTRIM DS [Concomitant]
     Active Substance: SULFAMETHOXAZOLE\TRIMETHOPRIM
     Dosage: 800-160 MG
  10. VITAMIN D [Concomitant]
     Active Substance: CHOLECALCIFEROL
  11. PREVACID [Concomitant]
     Active Substance: LANSOPRAZOLE
     Dosage: DR
  12. ATENOLOL. [Concomitant]
     Active Substance: ATENOLOL
  13. HIZENTRA [Suspect]
     Active Substance: HUMAN IMMUNOGLOBULIN G
     Indication: IMMUNODEFICIENCY COMMON VARIABLE
     Route: 058
     Dates: start: 20080411
  14. MORPHINE [Concomitant]
     Active Substance: MORPHINE
     Dosage: 8 MG/ML VIAL
  15. PHENERGAN [Concomitant]
     Active Substance: PROMETHAZINE HYDROCHLORIDE
     Dosage: 25 MG/ML AMPUL
  16. HIZENTRA [Suspect]
     Active Substance: HUMAN IMMUNOGLOBULIN G
     Route: 058
  17. CEPHALEXIN. [Concomitant]
     Active Substance: CEPHALEXIN
  18. CLEOCIN [Concomitant]
     Active Substance: CLINDAMYCIN PHOSPHATE
     Dosage: SUPP. VAG.
  19. ALBUTEROL. [Concomitant]
     Active Substance: ALBUTEROL
  20. MAXALT [Concomitant]
     Active Substance: RIZATRIPTAN BENZOATE
  21. ANZEMET [Concomitant]
     Active Substance: DOLASETRON MESYLATE
     Dosage: 20 MG/ML VIAL
  22. EPI-PEN AUTOINJECTOR [Concomitant]
  23. HYDROXYZINE [Concomitant]
     Active Substance: HYDROXYZINE\HYDROXYZINE HYDROCHLORIDE
     Dosage: 25 MG/ML VIAL
  24. SODIUM CHLORIDE. [Concomitant]
     Active Substance: SODIUM CHLORIDE
     Dosage: SOLUTION
  25. FLAGYL [Concomitant]
     Active Substance: METRONIDAZOLE\METRONIDAZOLE HYDROCHLORIDE
  26. ZETIA [Concomitant]
     Active Substance: EZETIMIBE
  27. DIPHENHYDRAMINE. [Concomitant]
     Active Substance: DIPHENHYDRAMINE
  28. DOMPERIDONE BP [Concomitant]
     Dosage: POWDER

REACTIONS (2)
  - Sinusitis [Unknown]
  - Eye infection [Unknown]
